FAERS Safety Report 4978257-8 (Version None)
Quarter: 2006Q2

REPORT INFORMATION
  Report Type: 
  Country: None (occurrence: None)
  Receive Date: 20060420
  Receipt Date: 20060413
  Transmission Date: 20061013
  Serious: Yes (Hospitalization, Other)
  Sender: FDA-Public Use
  Company Number: CH-BRISTOL-MYERS SQUIBB COMPANY-13346317

PATIENT
  Age: 56 Year
  Sex: Male

DRUGS (5)
  1. GLUCOPHAGE [Suspect]
     Route: 048
     Dates: start: 20030101, end: 20060104
  2. TRANXILIUM [Suspect]
     Indication: DEPRESSION
     Dosage: DOAGE FORM = TABLETS
     Route: 048
     Dates: end: 20060104
  3. NORTRILEN [Suspect]
     Indication: DEPRESSION
     Route: 048
     Dates: end: 20060104
  4. GLIMEPIRIDE [Suspect]
     Route: 048
     Dates: start: 20030101, end: 20060104
  5. XANTINOL NICOTINATE [Suspect]
     Route: 048
     Dates: start: 20030101, end: 20060104

REACTIONS (6)
  - DRUG ABUSER [None]
  - GENERAL PHYSICAL HEALTH DETERIORATION [None]
  - HYPOTENSION [None]
  - RENAL FAILURE ACUTE [None]
  - SOMNOLENCE [None]
  - TUBULOINTERSTITIAL NEPHRITIS [None]
